FAERS Safety Report 20939690 (Version 1)
Quarter: 2022Q2

REPORT INFORMATION
  Report Type: Spontaneous
  Country: US (occurrence: US)
  Receive Date: 20220609
  Receipt Date: 20220609
  Transmission Date: 20220721
  Serious: Yes (Other)
  Sender: FDA-Public Use
  Company Number: US-SA-SAC20220606000408

PATIENT
  Sex: Female

DRUGS (7)
  1. DUPIXENT [Suspect]
     Active Substance: DUPILUMAB
     Indication: Dermatitis atopic
     Dosage: 300 MG, QOW
     Route: 058
     Dates: start: 20170608
  2. ALLOPURINOL [Concomitant]
     Active Substance: ALLOPURINOL
  3. SYNTHROID [Concomitant]
     Active Substance: LEVOTHYROXINE SODIUM
     Dosage: 10MG
  4. SINGULAIR [Concomitant]
     Active Substance: MONTELUKAST SODIUM
  5. FEMARA [Concomitant]
     Active Substance: LETROZOLE
     Dosage: 20MG
  6. LASIX [Concomitant]
     Active Substance: FUROSEMIDE
     Dosage: 25MG
  7. KLOR-CON [Concomitant]
     Active Substance: POTASSIUM CHLORIDE

REACTIONS (2)
  - Glaucoma [Unknown]
  - Dry eye [Unknown]
